FAERS Safety Report 9814579 (Version 2)
Quarter: 2014Q1

REPORT INFORMATION
  Report Type: Spontaneous
  Country: DK (occurrence: FR)
  Receive Date: 20140113
  Receipt Date: 20140116
  Transmission Date: 20141002
  Serious: Yes (Hospitalization)
  Sender: FDA-Public Use
  Company Number: FR-FRI-1000052782

PATIENT
  Age: 26 Year
  Sex: Male

DRUGS (9)
  1. ESCITALOPRAM [Suspect]
     Route: 048
  2. ESCITALOPRAM [Suspect]
     Dosage: ESCITALOPRAM OVERDOSE: UNKNOWN AMOUNT.
     Route: 048
     Dates: start: 20130416, end: 20130416
  3. BROMAZEPAM [Suspect]
     Route: 048
  4. BROMAZEPAM [Suspect]
     Dosage: BROMAZEPAM OVERDOSE: UNKNOWN AMOUNT.
     Route: 048
     Dates: start: 20130416, end: 20130416
  5. ZOPICLONE [Suspect]
     Route: 048
  6. ZOPICLONE [Suspect]
     Dosage: ZOPICLONE OVERDOSE: UNKNOWN AMOUNT.
     Route: 048
     Dates: start: 20130416, end: 20130416
  7. TERCIAN [Suspect]
     Route: 048
  8. TERCIAN [Suspect]
     Dosage: CYAMEMAZINE OVERDOSE: UNKNOWN AMOUNT.
     Route: 048
     Dates: start: 20130416, end: 20130416
  9. ALCOHOL [Suspect]

REACTIONS (2)
  - Coma [Recovered/Resolved]
  - Intentional overdose [Recovered/Resolved]
